FAERS Safety Report 9226172 (Version 3)
Quarter: 2013Q2

REPORT INFORMATION
  Report Type: Report from Study
  Country: CA (occurrence: CA)
  Receive Date: 20130411
  Receipt Date: 20130506
  Transmission Date: 20140414
  Serious: Yes (Hospitalization, Other)
  Sender: FDA-Public Use
  Company Number: CA-ABBOTT-13P-028-1072076-00

PATIENT
  Age: 57 Year
  Sex: Female
  Weight: 81.72 kg

DRUGS (8)
  1. HUMIRA [Suspect]
     Indication: RHEUMATOID ARTHRITIS
     Route: 058
     Dates: start: 20121109, end: 20130403
  2. HUMIRA [Suspect]
     Route: 058
     Dates: start: 20130423
  3. ANXIOLYTICS [Suspect]
     Indication: PRODUCT USED FOR UNKNOWN INDICATION
  4. SEROQUEL [Concomitant]
     Indication: DEPRESSION
     Route: 048
  5. APO OXAZEPAM [Concomitant]
     Indication: ANXIETY
     Route: 048
  6. METHOTREXATE [Concomitant]
     Indication: RHEUMATOID ARTHRITIS
     Route: 058
  7. FOLIC ACID [Concomitant]
     Indication: VITAMIN SUPPLEMENTATION
     Route: 048
  8. METFORMIN [Concomitant]
     Indication: DIABETES MELLITUS
     Route: 048

REACTIONS (3)
  - Toxicity to various agents [Unknown]
  - Renal disorder [Unknown]
  - Kidney infection [Unknown]
